FAERS Safety Report 6986343-6 (Version None)
Quarter: 2010Q3

REPORT INFORMATION
  Report Type: 
  Country: None (occurrence: None)
  Receive Date: 20100910
  Receipt Date: 20100901
  Transmission Date: 20110219
  Serious: No
  Sender: FDA-Public Use
  Company Number: DSJ-2010-14065

PATIENT
  Age: 76 Year
  Sex: Male
  Weight: 46 kg

DRUGS (3)
  1. OLMETEC (OLMESARTAN MEDOXOMIL) (TABLET) (OLMESARTAN MEDOXOMIL) [Suspect]
     Indication: ESSENTIAL HYPERTENSION
     Dosage: 10 MG, PER ORAL
     Route: 048
     Dates: start: 20100421, end: 20100517
  2. ALLOPURINOL [Concomitant]
  3. TAKEPRON OD (LANSOPRAZOLE) (LANSOPRAZOLE) [Concomitant]

REACTIONS (1)
  - DIZZINESS POSTURAL [None]
